FAERS Safety Report 6791095-9 (Version None)
Quarter: 2010Q2

REPORT INFORMATION
  Report Type: 
  Country: None (occurrence: None)
  Receive Date: 20100623
  Receipt Date: 20100623
  Transmission Date: 20101027
  Serious: Yes (Life-Threatening, Hospitalization)
  Sender: FDA-Public Use
  Company Number: None

PATIENT
  Age: 33 Year
  Sex: Male
  Weight: 70.3075 kg

DRUGS (6)
  1. PHENYTOIN [Suspect]
     Indication: CONVULSION
     Dosage: 200 MG TID PO
     Route: 048
     Dates: start: 20100324, end: 20100401
  2. LITHIUM CARBONATE [Suspect]
     Indication: BIPOLAR DISORDER
     Dosage: 600 MG TID PO
     Route: 048
     Dates: start: 20090305, end: 20100403
  3. DIVALPROEX EXTENDED-RELEASE [Suspect]
  4. LITHIUM CARBONATE [Concomitant]
  5. QUETIAPINE [Concomitant]
  6. LORATADINE [Concomitant]

REACTIONS (9)
  - ATAXIA [None]
  - DROOLING [None]
  - DYSARTHRIA [None]
  - FALL [None]
  - LETHARGY [None]
  - MENTAL STATUS CHANGES [None]
  - SEDATION [None]
  - THERAPEUTIC AGENT TOXICITY [None]
  - TREMOR [None]
